FAERS Safety Report 9973572 (Version 1)
Quarter: 2014Q1

REPORT INFORMATION
  Report Type: Spontaneous
  Country: KR (occurrence: KR)
  Receive Date: 20140306
  Receipt Date: 20140306
  Transmission Date: 20141002
  Serious: Yes (Other)
  Sender: FDA-Public Use
  Company Number: KR-OTSUKA-JP-2014-11912

PATIENT
  Sex: 0

DRUGS (4)
  1. PLETAAL [Suspect]
     Indication: ACUTE MYOCARDIAL INFARCTION
     Dosage: 200 MG MILLIGRAM(S), DAILY DOSE
     Route: 048
  2. ASPIRIN [Concomitant]
     Dosage: 300 MG MILLIGRAM(S), DAILY DOSE
     Route: 065
  3. CLOPIDOGREL SULFATE [Concomitant]
     Dosage: 600 MG MILLIGRAM(S), UNK
     Route: 048
  4. CLOPIDOGREL SULFATE [Concomitant]
     Dosage: 75 MG MILLIGRAM(S), DAILY DOSE
     Route: 048

REACTIONS (8)
  - Atrioventricular block [Unknown]
  - Ventricular fibrillation [Unknown]
  - Cerebrovascular accident [Unknown]
  - Cardiogenic shock [Unknown]
  - Ventricular tachycardia [Unknown]
  - Haemorrhage [Unknown]
  - Haemorrhage [Unknown]
  - Off label use [Unknown]
